FAERS Safety Report 19485513 (Version 1)
Quarter: 2021Q3

REPORT INFORMATION
  Report Type: Other
  Country: GB (occurrence: GB)
  Receive Date: 20210702
  Receipt Date: 20210702
  Transmission Date: 20211014
  Serious: No
  Sender: FDA-Public Use
  Company Number: GB-LUPIN PHARMACEUTICALS INC.-2021-07968

PATIENT
  Age: 80 Year
  Sex: Female
  Weight: 50 kg

DRUGS (7)
  1. BISOPROLOL [Concomitant]
     Active Substance: BISOPROLOL
     Indication: ILL-DEFINED DISORDER
     Dosage: UNK, QD, (TAKE ONE EACH MORNING)
     Route: 065
     Dates: start: 20201029
  2. FUROSEMIDE. [Concomitant]
     Active Substance: FUROSEMIDE
     Indication: ILL-DEFINED DISORDER
     Dosage: UNK UNK, QD, (1 A DAY)
     Route: 065
     Dates: start: 20210121
  3. MACROGOL [Concomitant]
     Active Substance: POLYETHYLENE GLYCOLS
     Indication: ILL-DEFINED DISORDER
     Dosage: UNK,( 1?2 DAILY IF REQUIRED TO EASE CONSTIPATION)
     Route: 065
     Dates: start: 20200806
  4. MEMANTINE. [Suspect]
     Active Substance: MEMANTINE
     Indication: PRODUCT USED FOR UNKNOWN INDICATION
     Dosage: UNK, QD, (1 A DAY)
     Route: 065
     Dates: start: 20201005
  5. OLIVE OIL [Concomitant]
     Active Substance: OLIVE OIL
     Indication: ILL-DEFINED DISORDER
     Dosage: UNK, BID, (2?3 DROPS AT LEAST TWICE DAILY)
     Route: 065
     Dates: start: 20210305, end: 20210312
  6. ZEROCREAM [Concomitant]
     Indication: DRY SKIN
     Dosage: UNK, (APPLY AS DIRECTED AS MOISTURIZER)
     Route: 065
     Dates: start: 20210415, end: 20210513
  7. MACROGOL [Concomitant]
     Active Substance: POLYETHYLENE GLYCOLS
     Indication: CONSTIPATION

REACTIONS (2)
  - Dyskinesia [Recovered/Resolved]
  - Muscle twitching [Recovered/Resolved]

NARRATIVE: CASE EVENT DATE: 20210517
